FAERS Safety Report 14102534 (Version 1)
Quarter: 2017Q4

REPORT INFORMATION
  Report Type: Spontaneous
  Country: US (occurrence: None)
  Receive Date: 20171018
  Receipt Date: 20171018
  Transmission Date: 20180321
  Serious: Yes (Hospitalization)
  Sender: FDA-Public Use
  Company Number: None

PATIENT
  Age: 63 Year
  Sex: Female

DRUGS (14)
  1. METHOCARBAM [Concomitant]
  2. ZOLPIDEM [Concomitant]
     Active Substance: ZOLPIDEM\ZOLPIDEM TARTRATE
  3. ASA [Concomitant]
     Active Substance: ASPIRIN
  4. QUETIAPINE. [Concomitant]
     Active Substance: QUETIAPINE
  5. LORAZEPAM. [Concomitant]
     Active Substance: LORAZEPAM
  6. RYTARY [Concomitant]
     Active Substance: CARBIDOPA\LEVODOPA
  7. NUPLAZID [Suspect]
     Active Substance: PIMAVANSERIN TARTRATE
     Indication: PARKINSON^S DISEASE
     Dosage: DOSE AMOUNT - 2 TABS (34MG) PO
     Route: 048
     Dates: start: 20170725
  8. METFORMIN [Concomitant]
     Active Substance: METFORMIN HYDROCHLORIDE
  9. PRAMIPEXOLE. [Concomitant]
     Active Substance: PRAMIPEXOLE
  10. CARB. [Concomitant]
  11. LEVO [Concomitant]
     Active Substance: LEVOBUPIVACAINE
  12. NIFEDIPINE. [Concomitant]
     Active Substance: NIFEDIPINE
  13. FERROUS SULF [Concomitant]
     Active Substance: FERROUS SULFATE
  14. ENTACAPONE. [Concomitant]
     Active Substance: ENTACAPONE

REACTIONS (5)
  - Gastrointestinal haemorrhage [None]
  - Dehydration [None]
  - Electrocardiogram QT prolonged [None]
  - Intestinal ischaemia [None]
  - Off label use [None]

NARRATIVE: CASE EVENT DATE: 201709
